FAERS Safety Report 10095351 (Version 2)
Quarter: 2014Q2

REPORT INFORMATION
  Report Type: Spontaneous
  Country: US (occurrence: US)
  Receive Date: 20140422
  Receipt Date: 20140507
  Transmission Date: 20141212
  Serious: No
  Sender: FDA-Public Use
  Company Number: US-009507513-1404USA006923

PATIENT
  Age: 92 Year
  Sex: Female

DRUGS (8)
  1. LOSARTAN POTASSIUM [Concomitant]
     Indication: HYPERTENSION
     Dosage: UNK, UNKNOWN
  2. HYDROCHLOROTHIAZIDE [Concomitant]
     Indication: HYPERTENSION
     Dosage: UNK, UNKNOWN
  3. NEXIUM [Concomitant]
     Indication: PRODUCT USED FOR UNKNOWN INDICATION
     Dosage: UNK, UNKNOWN
  4. APO AMITRIPTYLINE [Concomitant]
     Indication: PRODUCT USED FOR UNKNOWN INDICATION
     Dosage: 25 MG, UNKNOWN
  5. ATENOLOL [Concomitant]
     Indication: CARDIAC DISORDER
     Dosage: 50 MG, UNKNOWN
  6. OXYTROL FOR WOMEN [Suspect]
     Indication: INCONTINENCE
     Dosage: UNK, UNKNOWN
     Route: 062
     Dates: start: 20140201, end: 20140404
  7. OXYTROL FOR WOMEN [Suspect]
     Dosage: UNK, UNKNOWN
     Route: 062
     Dates: start: 20140201, end: 20140404
  8. ASPIRIN [Concomitant]
     Indication: PRODUCT USED FOR UNKNOWN INDICATION
     Dosage: 81 MG, UNKNOWN

REACTIONS (6)
  - Urinary retention [Recovered/Resolved]
  - Urinary tract infection [Unknown]
  - Hypertension [Unknown]
  - Dysuria [Unknown]
  - Abdominal distension [Unknown]
  - Local swelling [Unknown]
